FAERS Safety Report 13663422 (Version 1)
Quarter: 2017Q2

REPORT INFORMATION
  Report Type: Spontaneous
  Country: US (occurrence: US)
  Receive Date: 20170617
  Receipt Date: 20170617
  Transmission Date: 20170830
  Serious: No
  Sender: FDA-Public Use
  Company Number: None

PATIENT
  Age: 32 Year
  Sex: Male

DRUGS (1)
  1. 2MG BUPRENORPHINE [Suspect]
     Active Substance: BUPRENORPHINE
     Indication: SUBSTANCE USE DISORDER
     Dosage: ?          QUANTITY:15 TABLET(S);?
     Route: 060
     Dates: start: 20170609, end: 20170616

REACTIONS (11)
  - Anger [None]
  - Decreased appetite [None]
  - Confusional state [None]
  - Headache [None]
  - Sedation [None]
  - Dry eye [None]
  - Feeling abnormal [None]
  - Depression [None]
  - Irritability [None]
  - Withdrawal syndrome [None]
  - Product substitution issue [None]

NARRATIVE: CASE EVENT DATE: 20170613
